FAERS Safety Report 8305870-2 (Version None)
Quarter: 2012Q1

REPORT INFORMATION
  Report Type: 
  Country: None (occurrence: None)
  Receive Date: 20120326
  Receipt Date: 20120126
  Transmission Date: 20120608
  Serious: Yes (Other)
  Sender: FDA-Public Use
  Company Number: PHEH2011US008602

PATIENT
  Age: 77 Year
  Sex: Female

DRUGS (4)
  1. PLAVIX [Concomitant]
  2. ASPIRIN [Concomitant]
  3. ANAGRELIDE HCL [Concomitant]
  4. TASIGNA [Suspect]
     Indication: CHRONIC MYELOID LEUKAEMIA
     Dosage: 200 MG, BID, ORAL, 200 MG, QD, ORAL
     Route: 048
     Dates: start: 20110808

REACTIONS (3)
  - HAEMOGLOBIN DECREASED [None]
  - THROMBOCYTOSIS [None]
  - HEADACHE [None]
